FAERS Safety Report 7562375-4 (Version None)
Quarter: 2011Q2

REPORT INFORMATION
  Report Type: 
  Country: None (occurrence: None)
  Receive Date: 20110622
  Receipt Date: 20110609
  Transmission Date: 20111010
  Serious: Yes (Hospitalization, Other)
  Sender: FDA-Public Use
  Company Number: US-ELI_LILLY_AND_COMPANY-US201105001490

PATIENT
  Age: 52 Year
  Sex: Female

DRUGS (8)
  1. CITALOPRAM HYDROBROMIDE [Concomitant]
  2. SYMBICORT [Concomitant]
  3. LOMOTIL [Concomitant]
  4. VITAMIN D [Concomitant]
  5. FORTEO [Suspect]
     Indication: OSTEOPOROSIS
     Dosage: 20 UG, DAILY (1/D)
     Dates: start: 20110409
  6. DILAUDID [Concomitant]
  7. CALCIUM CARBONATE [Concomitant]
  8. MULTI-VITAMINS [Concomitant]

REACTIONS (10)
  - HAEMORRHAGE URINARY TRACT [None]
  - HAEMATURIA [None]
  - OEDEMA PERIPHERAL [None]
  - KIDNEY INFECTION [None]
  - RENAL IMPAIRMENT [None]
  - LOCALISED OEDEMA [None]
  - HOT FLUSH [None]
  - CYSTITIS [None]
  - DYSURIA [None]
  - POLYP [None]
